FAERS Safety Report 16909933 (Version 1)
Quarter: 2019Q4

REPORT INFORMATION
  Report Type: Spontaneous
  Country: DE (occurrence: DE)
  Receive Date: 20191011
  Receipt Date: 20191011
  Transmission Date: 20200122
  Serious: Yes (Congenital Anomaly)
  Sender: FDA-Public Use
  Company Number: DE-PURDUE-GBR-2019-0071556

PATIENT
  Sex: Male
  Weight: 3.78 kg

DRUGS (9)
  1. QUETIAPINE. [Suspect]
     Active Substance: QUETIAPINE
     Indication: COMPLEX REGIONAL PAIN SYNDROME
     Dosage: 50 MG, DAILY (1 TRIMESTER)
     Route: 064
     Dates: start: 20180512, end: 20190222
  2. HYDROMORPHONE HYDROCHLORIDE. [Suspect]
     Active Substance: HYDROMORPHONE HYDROCHLORIDE
     Indication: COMPLEX REGIONAL PAIN SYNDROME
     Dosage: 20 MG, DAILY (BIS 2) (1 TRIMESTER)
     Route: 064
     Dates: start: 20180512, end: 20181119
  3. PROPOFOL. [Concomitant]
     Active Substance: PROPOFOL
     Indication: GENERAL ANAESTHESIA
     Dosage: UNK (ONCE AROUND CONCEPTION OR THE WEEK BEFORE CONCEPTION) (1 TRIMESTER)
     Route: 064
  4. SPIRIVA RESPIMAT [Concomitant]
     Active Substance: TIOTROPIUM BROMIDE
     Dosage: 2.5 MCG, PRN (BEI BEDARF) (1 TRIMESTER)
     Dates: start: 20180519, end: 20190222
  5. VAXIGRIP [Concomitant]
     Active Substance: INFLUENZA VIRUS VACCINE
     Indication: IMMUNISATION
     Dosage: UNK (2 TRIEMSTER)
     Route: 064
     Dates: start: 20181017, end: 20181017
  6. VENLAFAXINE [Suspect]
     Active Substance: VENLAFAXINE HYDROCHLORIDE
     Indication: COMPLEX REGIONAL PAIN SYNDROME
     Dosage: 75 MG, DAILY (1 TRIMESTER)
     Route: 064
     Dates: start: 20180512, end: 20190222
  7. BUDESONIDE W/FORMOTEROL FUMARATE [Concomitant]
     Active Substance: BUDESONIDE\FORMOTEROL FUMARATE
     Indication: PRODUCT USED FOR UNKNOWN INDICATION
     Dosage: UNK (4.5 MCG/D (9-0-9)/160 MCG/D (320-0-320) (1 TRIMESTER)
     Route: 064
     Dates: start: 20180519, end: 20190222
  8. FOLIC ACID. [Concomitant]
     Active Substance: FOLIC ACID
     Indication: NEURAL TUBE DEFECT
     Dosage: UNK
     Route: 064
  9. KETANEST [Concomitant]
     Indication: GENERAL ANAESTHESIA
     Dosage: UNK (ONCE AROUND CONCEPTION OR THE WEEK BEFORE CONCEPTION) (1 TRIMESTER)
     Route: 064

REACTIONS (4)
  - Congenital megaureter [Unknown]
  - Congenital hydronephrosis [Unknown]
  - Kidney duplex [Unknown]
  - Foetal exposure during pregnancy [Unknown]
